FAERS Safety Report 26169893 (Version 2)
Quarter: 2025Q4

REPORT INFORMATION
  Report Type: Spontaneous
  Country: JP (occurrence: JP)
  Receive Date: 20251217
  Receipt Date: 20251224
  Transmission Date: 20260118
  Serious: Yes (Hospitalization)
  Sender: ELI LILLY AND COMPANY
  Company Number: JP-ELI_LILLY_AND_COMPANY-JP202512017999

PATIENT
  Age: 86 Year
  Sex: Female

DRUGS (5)
  1. KISUNLA [Suspect]
     Active Substance: DONANEMAB-AZBT
     Indication: Product used for unknown indication
     Dosage: UNK
     Route: 041
     Dates: start: 20251113
  2. KISUNLA [Suspect]
     Active Substance: DONANEMAB-AZBT
     Dosage: 700 MG
     Route: 041
  3. PRAVASTATIN SODIUM [Concomitant]
     Active Substance: PRAVASTATIN SODIUM
     Indication: Dyslipidaemia
  4. RISEDRONATE SODIUM [Concomitant]
     Active Substance: RISEDRONATE SODIUM
     Indication: Osteoporosis
  5. KETOPROFEN [Concomitant]
     Active Substance: KETOPROFEN

REACTIONS (5)
  - Anaphylactic shock [Recovered/Resolved]
  - Platelet count decreased [Recovering/Resolving]
  - Disseminated intravascular coagulation [Recovered/Resolved]
  - Fibrin D dimer increased [Recovered/Resolved]
  - Blood potassium decreased [Unknown]

NARRATIVE: CASE EVENT DATE: 20251211
